FAERS Safety Report 21368379 (Version 1)
Quarter: 2022Q3

REPORT INFORMATION
  Report Type: Spontaneous
  Country: GB (occurrence: GB)
  Receive Date: 20220923
  Receipt Date: 20220923
  Transmission Date: 20221027
  Serious: Yes (Other)
  Sender: FDA-Public Use
  Company Number: GB-BRISTOL-MYERS SQUIBB COMPANY-2022-095046

PATIENT
  Age: 63 Year
  Sex: Male
  Weight: 115.5 kg

DRUGS (6)
  1. CARBOPLATIN [Suspect]
     Active Substance: CARBOPLATIN
     Indication: Anal squamous cell carcinoma
     Dosage: UNKNOWN
     Route: 065
     Dates: start: 202111, end: 202202
  2. TAXOL [Suspect]
     Active Substance: PACLITAXEL
     Indication: Anal squamous cell carcinoma
     Dosage: UNKNOWN
     Route: 065
     Dates: start: 202111, end: 202202
  3. PACLITAXEL [Suspect]
     Active Substance: PACLITAXEL
     Indication: Anal squamous cell carcinoma
     Dosage: UNKNOWN
     Route: 065
     Dates: start: 202111, end: 202202
  4. MITOMYCIN C [Concomitant]
     Active Substance: MITOMYCIN
     Indication: Chemotherapy
     Dosage: UNKNOWN
     Route: 065
     Dates: start: 201909, end: 201911
  5. CAPECITABINE [Concomitant]
     Active Substance: CAPECITABINE
     Indication: Chemotherapy
     Dosage: UNKNOWN
     Route: 065
     Dates: start: 201909, end: 201911
  6. NIVOLUMAB [Concomitant]
     Active Substance: NIVOLUMAB
     Indication: Product used for unknown indication
     Route: 042

REACTIONS (3)
  - Lymphadenopathy mediastinal [Unknown]
  - Malignant neoplasm progression [Unknown]
  - Therapy partial responder [Unknown]
